FAERS Safety Report 5423923-3 (Version None)
Quarter: 2007Q3

REPORT INFORMATION
  Report Type: 
  Country: None (occurrence: None)
  Receive Date: 20070823
  Receipt Date: 20070810
  Transmission Date: 20080115
  Serious: No
  Sender: FDA-Public Use
  Company Number: US-ELI_LILLY_AND_COMPANY-US200708002317

PATIENT
  Age: 17 Year
  Sex: Male
  Weight: 157.82 kg

DRUGS (5)
  1. CYMBALTA [Suspect]
     Indication: OBSESSIVE-COMPULSIVE DISORDER
     Dosage: 120 MG, UNK
  2. CYMBALTA [Suspect]
     Dosage: 90 MG, UNK
  3. LITHIUM CARBONATE [Concomitant]
     Dosage: 1200 MG, DAILY (1/D)
  4. SEROQUEL [Concomitant]
     Indication: SLEEP DISORDER
     Dosage: 300 MG, UNK
  5. SEROQUEL [Concomitant]
     Dosage: 600 MG, UNK

REACTIONS (3)
  - ALANINE AMINOTRANSFERASE INCREASED [None]
  - ASPARTATE AMINOTRANSFERASE INCREASED [None]
  - GAMMA-GLUTAMYLTRANSFERASE INCREASED [None]
